FAERS Safety Report 14187063 (Version 1)
Quarter: 2017Q4

REPORT INFORMATION
  Report Type: Spontaneous
  Country: US (occurrence: US)
  Receive Date: 20171114
  Receipt Date: 20171114
  Transmission Date: 20180321
  Serious: Yes (Hospitalization)
  Sender: FDA-Public Use
  Company Number: US-PFIZER INC-2017487261

PATIENT
  Age: 80 Year
  Sex: Male

DRUGS (3)
  1. MYLOTARG [Suspect]
     Active Substance: GEMTUZUMAB OZOGAMICIN
     Dosage: 6.3 MG, (3MG/M2 PER DOSE FOR 3 DOSES TOTAL)
     Dates: start: 20171103, end: 20171103
  2. MYLOTARG [Suspect]
     Active Substance: GEMTUZUMAB OZOGAMICIN
     Indication: ACUTE MYELOID LEUKAEMIA
     Dosage: 6.3 MG, (3MG/M2 PER DOSE FOR 3 DOSES TOTAL)
     Dates: start: 20171031, end: 20171031
  3. MYLOTARG [Suspect]
     Active Substance: GEMTUZUMAB OZOGAMICIN
     Dosage: 6.3 MG, (3MG/M2 PER DOSE FOR 3 DOSES TOTAL)
     Dates: start: 20171106, end: 20171106

REACTIONS (1)
  - Asthenia [Unknown]

NARRATIVE: CASE EVENT DATE: 20171108
